FAERS Safety Report 18446807 (Version 1)
Quarter: 2020Q4

REPORT INFORMATION
  Report Type: Spontaneous
  Country: US (occurrence: US)
  Receive Date: 20201030
  Receipt Date: 20201030
  Transmission Date: 20210114
  Serious: No
  Sender: FDA-Public Use
  Company Number: US-NOVOPROD-719858

PATIENT
  Age: 59 Year
  Sex: Female

DRUGS (1)
  1. TRESIBA [Suspect]
     Active Substance: INSULIN DEGLUDEC
     Indication: TYPE 2 DIABETES MELLITUS
     Dosage: 14 IU
     Route: 058

REACTIONS (3)
  - Illness [Unknown]
  - Subcutaneous drug absorption impaired [Not Recovered/Not Resolved]
  - Injection site discolouration [Not Recovered/Not Resolved]
